FAERS Safety Report 8963043 (Version 1)
Quarter: 2012Q4

REPORT INFORMATION
  Report Type: Spontaneous
  Country: US (occurrence: None)
  Receive Date: 20121204
  Receipt Date: 20121204
  Transmission Date: 20130627
  Serious: Yes (Other)
  Sender: FDA-Public Use
  Company Number: 142549

PATIENT
  Age: 70 Year
  Sex: Male
  Weight: 101.61 kg

DRUGS (1)
  1. ACETYLCYSTEINE [Suspect]
     Dosage: 6000mg X one time
     Route: 048
     Dates: start: 20121128

REACTIONS (2)
  - Incorrect dose administered [None]
  - Medication error [None]
